FAERS Safety Report 5759417-5 (Version None)
Quarter: 2008Q2

REPORT INFORMATION
  Report Type: 
  Country: None (occurrence: None)
  Receive Date: 20080604
  Receipt Date: 20080604
  Transmission Date: 20081010
  Serious: Yes (Other)
  Sender: FDA-Public Use
  Company Number: None

PATIENT
  Age: 77 Year
  Sex: Male
  Weight: 85.7298 kg

DRUGS (2)
  1. DIOVAN [Suspect]
     Indication: BLOOD PRESSURE INCREASED
     Dosage: 160 1 IN AM PO
     Route: 048
     Dates: start: 20080401, end: 20080501
  2. LISINOPRIL [Suspect]
     Indication: BLOOD PRESSURE INCREASED
     Dosage: 10 MG 1 - IN AM PO
     Route: 048
     Dates: start: 20071201

REACTIONS (2)
  - COUGH [None]
  - DYSURIA [None]
